FAERS Safety Report 9258777 (Version 1)
Quarter: 2013Q2

REPORT INFORMATION
  Report Type: Other
  Country: TH (occurrence: TH)
  Receive Date: 20130426
  Receipt Date: 20130426
  Transmission Date: 20140414
  Serious: Yes (Other)
  Sender: FDA-Public Use
  Company Number: TH-BRISTOL-MYERS SQUIBB COMPANY-18823161

PATIENT
  Sex: 0

DRUGS (1)
  1. STOCRIN TABS [Suspect]
     Indication: HIV INFECTION
     Route: 048

REACTIONS (1)
  - Nephropathy toxic [Unknown]
